FAERS Safety Report 7944930-2 (Version None)
Quarter: 2011Q4

REPORT INFORMATION
  Report Type: 
  Country: None (occurrence: None)
  Receive Date: 20111129
  Receipt Date: 20111122
  Transmission Date: 20120403
  Serious: Yes (Life-Threatening, Hospitalization, Other)
  Sender: FDA-Public Use
  Company Number: PHHY2011FR94824

PATIENT
  Sex: Female

DRUGS (7)
  1. EVEROLIMUS [Suspect]
     Indication: METASTATIC RENAL CELL CARCINOMA
     Dosage: 10 MG, DAILY
     Dates: start: 20110704, end: 20110901
  2. BISOPROLOL FUMARATE [Concomitant]
  3. BACTRIM [Concomitant]
     Dosage: 4 DF, TID
     Route: 042
  4. CORTICOSTEROIDS [Concomitant]
     Dosage: UNK UL, UNK
     Dates: end: 20111011
  5. LASIX [Concomitant]
  6. EVEROLIMUS [Suspect]
     Dosage: 5 MG AND 10 MG DAILY ALTERNATING
     Dates: start: 20110820
  7. EVEROLIMUS [Suspect]
     Dosage: 10 MG, DAILY

REACTIONS (14)
  - PNEUMOCYSTIS JIROVECI PNEUMONIA [None]
  - ATRIAL FIBRILLATION [None]
  - INTERSTITIAL LUNG DISEASE [None]
  - PYREXIA [None]
  - URINARY RETENTION [None]
  - AORTIC VALVE SCLEROSIS [None]
  - DYSPNOEA [None]
  - SOMNOLENCE [None]
  - VENTRICULAR HYPOKINESIA [None]
  - AKINESIA [None]
  - CARDIAC FAILURE [None]
  - COUGH [None]
  - TUMOUR LYSIS SYNDROME [None]
  - CONFUSIONAL STATE [None]
